FAERS Safety Report 9409551 (Version 2)
Quarter: 2013Q3

REPORT INFORMATION
  Report Type: Spontaneous
  Country: US (occurrence: None)
  Receive Date: 20130716
  Receipt Date: 20130731
  Transmission Date: 20140515
  Serious: Yes (Hospitalization)
  Sender: FDA-Public Use
  Company Number: ACO_33577_2012

PATIENT
  Age: 66 Year
  Sex: Female
  Weight: 81.6 kg

DRUGS (7)
  1. AMPYRA [Suspect]
     Indication: PRODUCT USED FOR UNKNOWN INDICATION
     Route: 048
     Dates: start: 201202, end: 20120330
  2. AUBAGIO [Suspect]
     Indication: MULTIPLE SCLEROSIS
     Route: 048
     Dates: start: 20121107
  3. LIPITOR (ATORVASTATIN CALCIUM) [Concomitant]
  4. LISINOPRIL (LISINOPRIL) [Concomitant]
  5. TEMAZEPAM (TEMAZEPAM) [Concomitant]
  6. SERTRALINE HCL (SERTRALINE HYDROCHLORIDE) [Concomitant]
  7. ASPIRIN (ACETYLSALICYLIC ACID) [Concomitant]

REACTIONS (1)
  - Atrial fibrillation [None]
